FAERS Safety Report 18277910 (Version 15)
Quarter: 2022Q1

REPORT INFORMATION
  Report Type: Report from Study
  Country: DE (occurrence: DE)
  Receive Date: 20200917
  Receipt Date: 20220218
  Transmission Date: 20220423
  Serious: Yes (Hospitalization, Other)
  Sender: FDA-Public Use
  Company Number: DE-002147023-NVSC2020DE167375

PATIENT

DRUGS (28)
  1. RUXOLITINIB [Suspect]
     Active Substance: RUXOLITINIB
     Indication: Polycythaemia vera
     Dosage: 20 MG, BID
     Route: 048
     Dates: start: 20191209, end: 20200927
  2. RUXOLITINIB [Suspect]
     Active Substance: RUXOLITINIB
     Dosage: 10 MG, BID
     Route: 048
     Dates: start: 20200928, end: 20210118
  3. RUXOLITINIB [Suspect]
     Active Substance: RUXOLITINIB
     Dosage: 10 MG, QD
     Route: 048
     Dates: start: 20210119, end: 20210803
  4. TORSEMIDE [Suspect]
     Active Substance: TORSEMIDE
     Indication: Hypertension
     Dosage: 5 MG, QD
     Route: 048
     Dates: end: 20200417
  5. TORSEMIDE [Suspect]
     Active Substance: TORSEMIDE
     Indication: Oedema peripheral
     Dosage: 5 MG, QD
     Route: 048
     Dates: start: 20200425, end: 20200619
  6. TORSEMIDE [Suspect]
     Active Substance: TORSEMIDE
     Dosage: 10 MG, QD
     Route: 048
     Dates: start: 202006, end: 20201201
  7. TORSEMIDE [Suspect]
     Active Substance: TORSEMIDE
     Dosage: 20 MG, BID
     Route: 048
     Dates: start: 20201202, end: 202012
  8. TORSEMIDE [Suspect]
     Active Substance: TORSEMIDE
     Dosage: 20 MG, QD
     Route: 048
     Dates: start: 202012, end: 202101
  9. TORSEMIDE [Suspect]
     Active Substance: TORSEMIDE
     Dosage: 15 MG, QD
     Route: 048
     Dates: start: 202012, end: 202101
  10. TORSEMIDE [Suspect]
     Active Substance: TORSEMIDE
     Dosage: 5 MG, QD
     Route: 048
     Dates: start: 202102, end: 202107
  11. TORSEMIDE [Suspect]
     Active Substance: TORSEMIDE
     Dosage: 10 MG, BID
     Route: 048
     Dates: start: 202108
  12. RAMIPRIL [Suspect]
     Active Substance: RAMIPRIL
     Indication: Product used for unknown indication
     Dosage: 2.5 MG
     Route: 048
     Dates: start: 20200425, end: 202101
  13. RAMIPRIL [Suspect]
     Active Substance: RAMIPRIL
     Dosage: 1.25 MG, QD
     Route: 048
     Dates: start: 202101, end: 202107
  14. XIPAMIDE [Suspect]
     Active Substance: XIPAMIDE
     Indication: Oedema peripheral
     Dosage: 10 MG, QD
     Route: 048
     Dates: start: 20201130, end: 202101
  15. XIPAMIDE [Suspect]
     Active Substance: XIPAMIDE
     Indication: Hypertension
     Dosage: 10 MG, QD
     Route: 048
     Dates: start: 202108
  16. ALDACTONE [Concomitant]
     Active Substance: SPIRONOLACTONE
     Indication: Lymphoedema
     Dosage: 25 MG, QD
     Route: 048
     Dates: end: 202107
  17. XARELTO [Concomitant]
     Active Substance: RIVAROXABAN
     Indication: Atrial fibrillation
     Dosage: 20 MG, QD
     Route: 048
     Dates: end: 20200417
  18. XARELTO [Concomitant]
     Active Substance: RIVAROXABAN
     Dosage: 20 MG, QD
     Route: 048
     Dates: start: 20200425, end: 202006
  19. PANTOPRAZOLE SODIUM [Concomitant]
     Active Substance: PANTOPRAZOLE SODIUM
     Indication: Upper gastrointestinal haemorrhage
     Dosage: 40 MG, BID
     Route: 048
     Dates: start: 201901, end: 202102
  20. PANTOPRAZOLE SODIUM [Concomitant]
     Active Substance: PANTOPRAZOLE SODIUM
     Dosage: 20 MG, BID
     Route: 048
     Dates: start: 202102, end: 202107
  21. PANTOPRAZOLE SODIUM [Concomitant]
     Active Substance: PANTOPRAZOLE SODIUM
     Dosage: 40 MG, BID
     Route: 048
     Dates: start: 202107
  22. SILAPO [Concomitant]
     Indication: Anaemia
     Dosage: 10000 IU, PRN
     Route: 042
     Dates: start: 201907
  23. ELIQUIS [Concomitant]
     Active Substance: APIXABAN
     Indication: Atrial fibrillation
     Dosage: 5 MG, BID
     Route: 048
     Dates: start: 202012
  24. CHOLECALCIFEROL [Concomitant]
     Active Substance: CHOLECALCIFEROL
     Indication: Prophylaxis
     Dosage: 1000 IU, QD
     Route: 048
     Dates: start: 202102
  25. ALLOPURINOL [Concomitant]
     Active Substance: ALLOPURINOL
     Indication: Hyperuricaemia
     Dosage: 100 MG, QD
     Route: 048
     Dates: start: 202102, end: 202107
  26. ALLOPURINOL [Concomitant]
     Active Substance: ALLOPURINOL
     Dosage: 100 MG, QD
     Route: 048
     Dates: start: 202108
  27. ATORVASTATIN [Concomitant]
     Active Substance: ATORVASTATIN
     Indication: Acute myocardial infarction
     Dosage: 40 MG, QD
     Route: 065
  28. TORSEMIDE [Concomitant]
     Active Substance: TORSEMIDE
     Indication: Hypertension
     Dosage: 5 MG, QD
     Route: 048
     Dates: start: 20200425, end: 20200619

REACTIONS (13)
  - Inappropriate schedule of product administration [Unknown]
  - Renal impairment [Recovered/Resolved]
  - Acute kidney injury [Recovered/Resolved]
  - Acute kidney injury [Recovered/Resolved]
  - Pneumonia [Recovered/Resolved]
  - Anaemia [Not Recovered/Not Resolved]
  - Hypokalaemia [Recovered/Resolved]
  - Hyperuricaemia [Recovering/Resolving]
  - Hypokalaemia [Recovered/Resolved]
  - Infection [Recovered/Resolved]
  - Oedema peripheral [Not Recovered/Not Resolved]
  - Ophthalmic herpes zoster [Recovered/Resolved]
  - Duodenal ulcer [Recovered/Resolved]

NARRATIVE: CASE EVENT DATE: 20200416
